FAERS Safety Report 5979154-1 (Version None)
Quarter: 2008Q4

REPORT INFORMATION
  Report Type: 
  Country: None (occurrence: None)
  Receive Date: 20081204
  Receipt Date: 20081126
  Transmission Date: 20090506
  Serious: Yes (Other)
  Sender: FDA-Public Use
  Company Number: SI-ROCHE-597239

PATIENT
  Age: 42 Year
  Sex: Female

DRUGS (2)
  1. MIRCERA [Suspect]
     Dosage: RECEIVED TWO DOSES.
     Route: 065
  2. NEORECORMON [Concomitant]

REACTIONS (2)
  - HEADACHE [None]
  - HYPOGLYCAEMIA [None]
